FAERS Safety Report 10025030 (Version 1)
Quarter: 2014Q1

REPORT INFORMATION
  Report Type: Report from Study
  Country: US (occurrence: None)
  Receive Date: 20140211
  Receipt Date: 20140211
  Transmission Date: 20141002
  Serious: Yes (Hospitalization)
  Sender: FDA-Public Use
  Company Number: 2013SA108864

PATIENT
  Age: 54 Year
  Sex: Female
  Weight: 92 kg

DRUGS (6)
  1. AUBAGIO [Suspect]
     Indication: MULTIPLE SCLEROSIS
     Route: 048
     Dates: start: 20131013
  2. REBIF [Concomitant]
  3. AVONEX [Concomitant]
  4. MORPHINE [Concomitant]
  5. ERYTHROMYCIN [Concomitant]
  6. DOXYCYCLINE [Concomitant]

REACTIONS (8)
  - Muscle spasms [None]
  - Tremor [None]
  - Asthenia [None]
  - Fatigue [None]
  - Pain in extremity [None]
  - Depression [None]
  - Chills [None]
  - Epistaxis [None]
